FAERS Safety Report 15213966 (Version 1)
Quarter: 2018Q3

REPORT INFORMATION
  Report Type: Spontaneous
  Country: US (occurrence: US)
  Receive Date: 20180730
  Receipt Date: 20180730
  Transmission Date: 20181010
  Serious: Yes (Other)
  Sender: FDA-Public Use
  Company Number: US-SA-2018SA203095

PATIENT
  Age: 65 Year
  Sex: Female

DRUGS (2)
  1. LANTUS [Concomitant]
     Active Substance: INSULIN GLARGINE
     Dosage: 9 U
  2. TOUJEO [Suspect]
     Active Substance: INSULIN GLARGINE
     Dosage: 3 U, QD

REACTIONS (1)
  - Blood glucose increased [Unknown]
